FAERS Safety Report 7232404 (Version 4)
Quarter: 2013Q4

REPORT INFORMATION
  Report Type: Spontaneous
  Country: US (occurrence: US)
  Receive Date: 20091229
  Receipt Date: 20131223
  Transmission Date: 20140711
  Serious: Yes (Life-Threatening, Hospitalization, Other)
  Sender: FDA-Public Use
  Company Number: US-BAYER-200943653NA

PATIENT
  Age: 29 Year
  Sex: Female
  Weight: 73.92 kg

DRUGS (10)
  1. YAZ [Suspect]
     Indication: CONTRACEPTION
     Dosage: UNK
     Dates: start: 200803, end: 200904
  2. YAZ [Suspect]
     Indication: CONTRACEPTION
     Route: 048
     Dates: start: 200803, end: 200904
  3. YASMIN [Suspect]
     Indication: CONTRACEPTION
     Dosage: UNK UNK, UNK
     Route: 048
     Dates: start: 200905, end: 200911
  4. LORATADINE [Concomitant]
     Dosage: 10 MG, UNK
  5. PSEUDOEPHEDRINE [Concomitant]
     Dosage: 30 MG, UNK
  6. FLUTICASONE [Concomitant]
     Dosage: 20 MG, UNK
  7. CEPHALEXIN [Concomitant]
     Dosage: 500 MG, UNK
  8. METOCLOPRAMIDE [Concomitant]
     Dosage: 5 MG, UNK
  9. HYDROCODONE/ACETAMINOPHEN [Concomitant]
     Dosage: 5/500 MG ;UNK
  10. XANAX [Concomitant]
     Dosage: 0.5 MG, UNK

REACTIONS (4)
  - Cholecystitis [None]
  - Cholelithiasis [None]
  - Gallbladder non-functioning [None]
  - Injury [None]
